FAERS Safety Report 4760830-3 (Version None)
Quarter: 2005Q3

REPORT INFORMATION
  Report Type: 
  Country: None (occurrence: None)
  Receive Date: 20050902
  Receipt Date: 20050829
  Transmission Date: 20060218
  Serious: Yes (Other)
  Sender: FDA-Public Use
  Company Number: JP-SANOFI-SYNTHELABO-F01200501713

PATIENT
  Sex: Male
  Weight: 52 kg

DRUGS (3)
  1. OXALIPLATIN [Suspect]
     Indication: COLON CANCER
     Dosage: 127.5MG/BODY=85MG/M2 D1
     Route: 042
     Dates: start: 20050426, end: 20050426
  2. FLUOROURACIL [Suspect]
     Dosage: 600MG/BODY=400 MG/M2 IV BOLUS AND 900MG/BODY=600 MG/M2 IV 22 HOURS CONTINUOUS INFUSION D1+2
     Route: 042
     Dates: start: 20050426, end: 20050427
  3. CALCIUM LEVOFOLINATE [Suspect]
     Dosage: 150MG/BODY=100MG/M2 D1+2
     Route: 042
     Dates: start: 20050426, end: 20050427

REACTIONS (3)
  - BLOOD POTASSIUM INCREASED [None]
  - LEUKOPENIA [None]
  - NEUTROPENIA [None]
